FAERS Safety Report 4295430-5 (Version None)
Quarter: 2004Q1

REPORT INFORMATION
  Report Type: 
  Country: None (occurrence: None)
  Receive Date: 20040211
  Receipt Date: 20040202
  Transmission Date: 20041129
  Serious: Yes (Other)
  Sender: FDA-Public Use
  Company Number: HQWYE785302FEB04

PATIENT
  Age: 36 Year
  Sex: Male

DRUGS (6)
  1. LODINE [Suspect]
     Indication: CONTUSION
     Dosage: 400 MG DAILY, ORAL
     Route: 048
     Dates: start: 20031031, end: 20031120
  2. LOXOPROFEN SODIUM (LOXOPROFEN SODUIM) [Concomitant]
  3. EPERISONE HYDROCHLORIDE (EPERISONE HYDROCHLORIDE) [Concomitant]
  4. TEPRENONE (TEPRENONE) [Concomitant]
  5. MECOBALAMIN (MECOBALAMIN) [Concomitant]
  6. KETOPROFEN [Concomitant]

REACTIONS (2)
  - CHEST PAIN [None]
  - HICCUPS [None]
